FAERS Safety Report 4679436-X (Version None)
Quarter: 2005Q2

REPORT INFORMATION
  Report Type: 
  Country: None (occurrence: None)
  Receive Date: 20050602
  Receipt Date: 20050525
  Transmission Date: 20051028
  Serious: Yes (Hospitalization)
  Sender: FDA-Public Use
  Company Number: US-BRISTOL-MYERS SQUIBB COMPANY-12981569

PATIENT
  Age: 68 Year
  Sex: Male
  Weight: 101 kg

DRUGS (4)
  1. CETUXIMAB [Suspect]
     Indication: COLON CANCER
     Route: 042
     Dates: start: 20050516, end: 20050516
  2. FLUOROURACIL [Suspect]
     Indication: COLON CANCER
     Route: 042
     Dates: start: 20050516, end: 20050516
  3. OXALIPLATIN [Suspect]
     Indication: COLON CANCER
     Route: 042
     Dates: start: 20050516, end: 20050516
  4. LEUCOVORIN [Suspect]
     Indication: COLON CANCER
     Route: 042
     Dates: start: 20050516, end: 20050516

REACTIONS (4)
  - ANGINA PECTORIS [None]
  - ATRIAL FIBRILLATION [None]
  - DYSPNOEA [None]
  - HYPOTENSION [None]
